FAERS Safety Report 24962175 (Version 1)
Quarter: 2025Q1

REPORT INFORMATION
  Report Type: Other
  Country: CA (occurrence: CA)
  Receive Date: 20250212
  Receipt Date: 20250212
  Transmission Date: 20250409
  Serious: Yes (Death)
  Sender: AVEVA DRUG DELIVERY SYSTEMS INC.
  Company Number: None

PATIENT
  Age: 35 Year
  Sex: Female

DRUGS (11)
  1. FENTANYL [Suspect]
     Active Substance: FENTANYL
     Indication: Product used for unknown indication
     Route: 065
  2. CLOZAPINE [Suspect]
     Active Substance: CLOZAPINE
     Indication: Schizophrenia
     Route: 065
  3. BENFOTIAMINE [Concomitant]
     Active Substance: BENFOTIAMINE
     Indication: Product used for unknown indication
     Route: 065
  4. LOXAPINE [Concomitant]
     Active Substance: LOXAPINE
     Indication: Sleep disorder
     Route: 065
  5. LUVOX [Concomitant]
     Active Substance: FLUVOXAMINE MALEATE
     Indication: Post-traumatic stress disorder
     Route: 065
  6. VITAMIN B12 [Concomitant]
     Active Substance: CYANOCOBALAMIN
     Indication: Product used for unknown indication
     Route: 065
  7. LUVOX [Concomitant]
     Active Substance: FLUVOXAMINE MALEATE
     Indication: Post-traumatic stress disorder
     Route: 065
  8. CLOZAPINE [Suspect]
     Active Substance: CLOZAPINE
     Indication: Product used for unknown indication
     Route: 065
  9. BENFOTIAMINE [Concomitant]
     Active Substance: BENFOTIAMINE
     Indication: Post-traumatic stress disorder
     Route: 065
  10. LUVOX [Concomitant]
     Active Substance: FLUVOXAMINE MALEATE
     Indication: Depressive symptom
     Route: 065
  11. LUVOX [Concomitant]
     Active Substance: FLUVOXAMINE MALEATE
     Indication: Anxiety
     Route: 065

REACTIONS (1)
  - Overdose [Fatal]
